FAERS Safety Report 9951806 (Version 1)
Quarter: 2014Q1

REPORT INFORMATION
  Report Type: Report from Study
  Country: CA (occurrence: CA)
  Receive Date: 20140304
  Receipt Date: 20140304
  Transmission Date: 20141002
  Serious: Yes (Hospitalization)
  Sender: FDA-Public Use
  Company Number: CA-IPSEN BIOPHARMACEUTICALS, INC.-2014-1021

PATIENT
  Age: 59 Year
  Sex: Male

DRUGS (1)
  1. SOMATULINE 90 MG [Suspect]
     Indication: ACROMEGALY
     Dosage: 90 MG
     Route: 058
     Dates: start: 20131107

REACTIONS (1)
  - Hip arthroplasty [Recovering/Resolving]
